FAERS Safety Report 11911198 (Version 2)
Quarter: 2016Q1

REPORT INFORMATION
  Report Type: Spontaneous
  Country: US (occurrence: US)
  Receive Date: 20160112
  Receipt Date: 20160314
  Transmission Date: 20160526
  Serious: No
  Sender: FDA-Public Use
  Company Number: US-PFIZER INC-2015463223

PATIENT
  Age: 65 Year
  Sex: Male
  Weight: 71 kg

DRUGS (13)
  1. CRANBERRY. [Suspect]
     Active Substance: CRANBERRY
     Dosage: 2 DF, 3X/DAY
     Route: 048
  2. TOPICORT [Concomitant]
     Active Substance: DESOXIMETASONE
     Dosage: UNK UNK, 2X/DAY (0.25% CREAM)
     Route: 061
  3. NEURONTIN [Concomitant]
     Active Substance: GABAPENTIN
     Dosage: 300 MG, 3X/DAY
     Route: 048
  4. KETOCONAZOLE. [Concomitant]
     Active Substance: KETOCONAZOLE
     Dosage: UNK (3 TIMES A WEEK TO WASH THE SCALP FOR 3 MINUTES)
     Route: 061
  5. BACLOFEN. [Concomitant]
     Active Substance: BACLOFEN
     Dosage: 40 ML, (2,000 MCG/ML SOLUTION AT 40 ML INTRATHECAL INFUSION)
     Route: 037
  6. ATROVENT [Concomitant]
     Active Substance: IPRATROPIUM BROMIDE
     Dosage: UNK (0.03% NASAL SPRAY)
     Route: 045
  7. NYSTATIN. [Concomitant]
     Active Substance: NYSTATIN
     Dosage: UNK (100,000 UNIT/GRAM CREAM)
     Route: 061
  8. OMEPRAZOLE. [Concomitant]
     Active Substance: OMEPRAZOLE
     Dosage: 20 MG, 2X/DAY
     Route: 048
  9. LIORESAL [Concomitant]
     Active Substance: BACLOFEN
     Indication: MUSCLE SPASMS
     Dosage: 20 MG, 3X/DAY (AS NEEDED)
     Route: 048
  10. LYRICA [Suspect]
     Active Substance: PREGABALIN
     Dosage: 300 MG, 3X/DAY
     Route: 048
  11. TEMOVATE [Concomitant]
     Active Substance: CLOBETASOL PROPIONATE
     Dosage: UNK, 2X/DAY (0.05% EXTERNAL SOLUTION)
  12. MIRALAX [Concomitant]
     Active Substance: POLYETHYLENE GLYCOL 3350
     Dosage: UNK, AS NEEDED
     Route: 048
  13. MIDODRINE [Concomitant]
     Active Substance: MIDODRINE
     Dosage: 5 MG, 3X/DAY
     Route: 048

REACTIONS (2)
  - Prescribed overdose [Unknown]
  - Tinea cruris [Unknown]
